FAERS Safety Report 24544608 (Version 1)
Quarter: 2024Q4

REPORT INFORMATION
  Report Type: Spontaneous
  Country: US (occurrence: None)
  Receive Date: 20241023
  Receipt Date: 20241023
  Transmission Date: 20250115
  Serious: Yes (Death)
  Sender: Public
  Company Number: None

PATIENT
  Age: 86 Year
  Sex: Male

DRUGS (1)
  1. LENALIDOMIDE [Suspect]
     Active Substance: LENALIDOMIDE
     Route: 048
     Dates: start: 20240517, end: 20241017

REACTIONS (6)
  - Cardiac arrest [None]
  - Cardio-respiratory arrest [None]
  - Hypermagnesaemia [None]
  - Shock [None]
  - Acute respiratory failure [None]
  - Sepsis [None]

NARRATIVE: CASE EVENT DATE: 20241017
